FAERS Safety Report 8035883-X (Version None)
Quarter: 2012Q1

REPORT INFORMATION
  Report Type: 
  Country: None (occurrence: None)
  Receive Date: 20120111
  Receipt Date: 20120111
  Transmission Date: 20120608
  Serious: Yes (Hospitalization)
  Sender: FDA-Public Use
  Company Number: None

PATIENT
  Age: 57 Year
  Sex: Male
  Weight: 102 kg

DRUGS (1)
  1. IPILIMUMAB [Suspect]
     Indication: METASTATIC MALIGNANT MELANOMA
     Dosage: 300 MG
     Route: 042
     Dates: start: 20111122, end: 20111122

REACTIONS (6)
  - HEADACHE [None]
  - ERYTHEMA [None]
  - PRURITUS [None]
  - HYPOPHYSITIS [None]
  - RASH [None]
  - NO THERAPEUTIC RESPONSE [None]
